FAERS Safety Report 10171034 (Version 1)
Quarter: 2014Q2

REPORT INFORMATION
  Report Type: Spontaneous
  Country: US (occurrence: None)
  Receive Date: 20140513
  Receipt Date: 20140513
  Transmission Date: 20141212
  Serious: Yes (Hospitalization)
  Sender: FDA-Public Use
  Company Number: None

PATIENT
  Age: 13 Year
  Sex: Female
  Weight: 62 kg

DRUGS (2)
  1. TOPOTECAN [Suspect]
     Indication: FIBROMATOSIS
     Dosage: 2.5 MG, D1-5 + 8-12, PO
     Route: 048
     Dates: start: 20140321, end: 20140324
  2. SORAFENIB [Suspect]
     Indication: FIBROMATOSIS
     Dosage: 250MG BID X 28DM PO
     Route: 048
     Dates: start: 20140321, end: 20140331

REACTIONS (9)
  - Fibromatosis [None]
  - Neoplasm progression [None]
  - Pyrexia [None]
  - Neutropenia [None]
  - Haemoglobin decreased [None]
  - Platelet count decreased [None]
  - Dehydration [None]
  - Nausea [None]
  - Vomiting [None]
